FAERS Safety Report 5732659-0 (Version None)
Quarter: 2008Q2

REPORT INFORMATION
  Report Type: 
  Country: None (occurrence: None)
  Receive Date: 20080508
  Receipt Date: 20080430
  Transmission Date: 20081010
  Serious: Yes (Other)
  Sender: FDA-Public Use
  Company Number: US-WYE-H03204608

PATIENT
  Sex: Male
  Weight: 75 kg

DRUGS (8)
  1. TORISEL [Suspect]
     Indication: RENAL CANCER STAGE IV
     Dosage: 25 MG
     Route: 042
     Dates: start: 20080318, end: 20080318
  2. ATENOLOL [Concomitant]
     Indication: HYPERTENSION
  3. TELMISARTAN [Concomitant]
     Indication: HYPERTENSION
  4. COLACE [Concomitant]
  5. PRILOSEC [Concomitant]
  6. ATIVAN [Concomitant]
  7. AMLODIPINE [Concomitant]
     Indication: HYPERTENSION
  8. CLONIDINE [Concomitant]
     Indication: HYPERTENSION

REACTIONS (4)
  - BLOOD PRESSURE SYSTOLIC DECREASED [None]
  - HEADACHE [None]
  - HYPERSENSITIVITY [None]
  - RASH [None]
